FAERS Safety Report 9216977 (Version 1)
Quarter: 2013Q2

REPORT INFORMATION
  Report Type: Spontaneous
  Country: CN (occurrence: CN)
  Receive Date: 20130408
  Receipt Date: 20130408
  Transmission Date: 20140414
  Serious: Yes (Other)
  Sender: FDA-Public Use
  Company Number: CN-NOVOPROD-374502

PATIENT
  Age: 50 Year
  Sex: Male

DRUGS (1)
  1. NOVOLIN [Suspect]
     Indication: PRODUCT USED FOR UNKNOWN INDICATION
     Dosage: UNK
     Route: 065

REACTIONS (4)
  - Suspected counterfeit product [Unknown]
  - Coma [Unknown]
  - Diabetes mellitus inadequate control [Unknown]
  - Haematemesis [Unknown]
